FAERS Safety Report 24568575 (Version 1)
Quarter: 2024Q4

REPORT INFORMATION
  Report Type: Spontaneous
  Country: GB (occurrence: GB)
  Receive Date: 20241031
  Receipt Date: 20241031
  Transmission Date: 20250115
  Serious: Yes (Hospitalization, Other)
  Sender: GLENMARK
  Company Number: GB-GLENMARK PHARMACEUTICALS-2024GMK095092

PATIENT

DRUGS (6)
  1. OMEPRAZOLE [Suspect]
     Active Substance: OMEPRAZOLE
     Indication: Infection
     Dosage: 40 MILLIGRAM, QD
     Route: 065
     Dates: start: 2010
  2. OMEPRAZOLE [Suspect]
     Active Substance: OMEPRAZOLE
     Indication: Analgesic therapy
     Dosage: 20 MILLIGRAM, OD
     Route: 065
     Dates: start: 2021
  3. IBUPROFEN [Concomitant]
     Active Substance: IBUPROFEN
     Indication: Analgesic therapy
     Dosage: 400 MILLIGRAM, TID
     Route: 065
  4. TEICOPLANIN [Concomitant]
     Active Substance: TEICOPLANIN
     Indication: Infection
     Dosage: 400 MILLIGRAM
     Route: 065
     Dates: start: 2021
  5. PREDNISOLONE [Concomitant]
     Active Substance: PREDNISOLONE
     Indication: Eczema
     Dosage: 30 MILLIGRAM, QD (REDUCING)
     Route: 048
     Dates: start: 2010
  6. PREDNISOLONE [Concomitant]
     Active Substance: PREDNISOLONE
     Indication: Infection

REACTIONS (1)
  - Drug reaction with eosinophilia and systemic symptoms [Unknown]

NARRATIVE: CASE EVENT DATE: 20100101
